FAERS Safety Report 6328595-1 (Version None)
Quarter: 2009Q3

REPORT INFORMATION
  Report Type: 
  Country: None (occurrence: None)
  Receive Date: 20090824
  Receipt Date: 20090824
  Transmission Date: 20100115
  Serious: No
  Sender: FDA-Public Use
  Company Number: None

PATIENT
  Sex: Female
  Weight: 76.4 kg

DRUGS (1)
  1. ACCUTANE [Suspect]
     Indication: ACNE
     Dosage: 40MG + 20MG TOTAL 60MG Q DAY ORAL
     Route: 048
     Dates: start: 20090108, end: 20090505

REACTIONS (1)
  - LEUKOCYTOCLASTIC VASCULITIS [None]
